FAERS Safety Report 4963367-1 (Version None)
Quarter: 2006Q1

REPORT INFORMATION
  Report Type: 
  Country: None (occurrence: None)
  Receive Date: 20060329
  Receipt Date: 20060320
  Transmission Date: 20060701
  Serious: Yes (Other)
  Sender: FDA-Public Use
  Company Number: 2006039952

PATIENT
  Sex: Male
  Weight: 107.9561 kg

DRUGS (4)
  1. NORVASC [Suspect]
     Indication: HYPERTENSION
  2. VIAGRA [Suspect]
     Indication: ERECTILE DYSFUNCTION
     Dosage: 50 MG
  3. TIMOLOL MALEATE [Concomitant]
  4. XALATAN [Concomitant]

REACTIONS (6)
  - ERECTILE DYSFUNCTION [None]
  - HYPOSMIA [None]
  - PERIODONTAL DISEASE [None]
  - POOR QUALITY DRUG ADMINISTERED [None]
  - RECURRENT CANCER [None]
  - RENAL CELL CARCINOMA STAGE UNSPECIFIED [None]
